FAERS Safety Report 18739127 (Version 1)
Quarter: 2021Q1

REPORT INFORMATION
  Report Type: Spontaneous
  Country: US (occurrence: US)
  Receive Date: 20210114
  Receipt Date: 20210114
  Transmission Date: 20210419
  Serious: No
  Sender: FDA-Public Use
  Company Number: US-ALLERGAN-2040372US

PATIENT
  Age: 47 Year
  Sex: Female

DRUGS (7)
  1. UBRELVY [Suspect]
     Active Substance: UBROGEPANT
     Indication: MIGRAINE
     Dosage: 100 MG, PRN
     Route: 048
  2. LINZESS [Concomitant]
     Active Substance: LINACLOTIDE
  3. CLONAZEPAM. [Concomitant]
     Active Substance: CLONAZEPAM
  4. TOPAMAX [Concomitant]
     Active Substance: TOPIRAMATE
  5. GABAPENTIN. [Concomitant]
     Active Substance: GABAPENTIN
  6. EMGALITY [Concomitant]
     Active Substance: GALCANEZUMAB-GNLM
  7. CELEXA [Concomitant]
     Active Substance: CITALOPRAM HYDROBROMIDE

REACTIONS (2)
  - Therapy cessation [Unknown]
  - Migraine [Unknown]
